FAERS Safety Report 15121386 (Version 1)
Quarter: 2018Q3

REPORT INFORMATION
  Report Type: Spontaneous
  Country: US (occurrence: US)
  Receive Date: 20180709
  Receipt Date: 20180709
  Transmission Date: 20181010
  Serious: Yes (Other)
  Sender: FDA-Public Use
  Company Number: US-BAYER-2018-126937

PATIENT
  Sex: Female

DRUGS (1)
  1. CIPRO [Suspect]
     Active Substance: CIPROFLOXACIN HYDROCHLORIDE
     Dosage: UNK
     Dates: start: 201804

REACTIONS (6)
  - Feeding disorder [None]
  - Vulvovaginal swelling [None]
  - Panic attack [None]
  - Nightmare [None]
  - Fungal infection [None]
  - Arthralgia [None]

NARRATIVE: CASE EVENT DATE: 2018
